FAERS Safety Report 25628463 (Version 1)
Quarter: 2025Q3

REPORT INFORMATION
  Report Type: Spontaneous
  Country: US (occurrence: US)
  Receive Date: 20250731
  Receipt Date: 20250731
  Transmission Date: 20251020
  Serious: No
  Sender: Alora Pharma
  Company Number: US-VERTICAL PHARMACEUTICALS-2025ALO02128

PATIENT
  Age: 54 Year
  Sex: Female

DRUGS (2)
  1. DIVIGEL [Suspect]
     Active Substance: ESTRADIOL
     Indication: Menopause
     Dosage: 1 MG, 1X/DAY
     Route: 061
  2. DIVIGEL [Suspect]
     Active Substance: ESTRADIOL
     Dosage: 1 MG, 1X/DAY
     Route: 061

REACTIONS (7)
  - Menopausal symptoms [Not Recovered/Not Resolved]
  - Brain fog [Not Recovered/Not Resolved]
  - Stress [Not Recovered/Not Resolved]
  - Feeling hot [Not Recovered/Not Resolved]
  - Mood altered [Not Recovered/Not Resolved]
  - Drug ineffective [Recovered/Resolved]
  - Product dose omission issue [Recovered/Resolved]

NARRATIVE: CASE EVENT DATE: 20250317
